FAERS Safety Report 6775508-4 (Version None)
Quarter: 2010Q2

REPORT INFORMATION
  Report Type: 
  Country: None (occurrence: None)
  Receive Date: 20100617
  Receipt Date: 20100614
  Transmission Date: 20101027
  Serious: Yes (Hospitalization)
  Sender: FDA-Public Use
  Company Number: US-BRISTOL-MYERS SQUIBB COMPANY-15147119

PATIENT
  Age: 73 Year
  Sex: Male
  Weight: 107 kg

DRUGS (25)
  1. ABILIFY [Suspect]
     Indication: DEPRESSION
     Dosage: REDUCED TO 1MG; INCREASED TO 2MG EVERY OTHER DAY: 12JUN2010
     Dates: start: 20100313
  2. NOVOLOG [Concomitant]
     Dosage: NOVOLOG PEN
  3. LEVEMIR [Concomitant]
     Dosage: LEVEMIR PEN
  4. METFORMIN [Concomitant]
  5. ZETIA [Concomitant]
  6. NIASPAN [Concomitant]
  7. LIPITOR [Concomitant]
  8. QUINAPRIL [Concomitant]
  9. VITAMIN D [Concomitant]
  10. ISORBID [Concomitant]
  11. COUMADIN [Concomitant]
  12. ASTELIN SPRAY [Concomitant]
     Route: 045
  13. EFFEXOR [Concomitant]
  14. SERTRALINE HCL [Concomitant]
  15. PROSCAR [Concomitant]
  16. FLOMAX [Concomitant]
  17. ALBUTEROL SULATE [Concomitant]
     Route: 055
  18. CITRUCEL [Concomitant]
  19. MIRALAX [Concomitant]
  20. ASPIRIN [Concomitant]
  21. VITAMIN B6 [Concomitant]
  22. COQ10 [Concomitant]
  23. NITROGLYCERIN [Concomitant]
  24. HYDROCODONE [Concomitant]
  25. TRAMADOL [Concomitant]
     Dates: end: 20100604

REACTIONS (5)
  - CHEST DISCOMFORT [None]
  - DYSKINESIA [None]
  - DYSPNOEA [None]
  - MYALGIA [None]
  - TESTICULAR SWELLING [None]
